FAERS Safety Report 8991440 (Version 1)
Quarter: 2012Q4

REPORT INFORMATION
  Report Type: Report from Study
  Country: AT (occurrence: AT)
  Receive Date: 20121231
  Receipt Date: 20121231
  Transmission Date: 20130627
  Serious: Yes (Hospitalization)
  Sender: FDA-Public Use
  Company Number: AT-ROCHE-1073385

PATIENT
  Age: 62 Year
  Sex: Female
  Weight: 55 kg

DRUGS (3)
  1. BEVACIZUMAB [Suspect]
     Indication: COLON CANCER
     Dosage: last dose prior to SAE was on 07/May/2012
     Route: 042
     Dates: start: 20120507
  2. CAPECITABINE [Suspect]
     Indication: COLON CANCER
     Dosage: last dose prior to SAE was on 20/May/2012
     Route: 048
     Dates: start: 20120507
  3. OXALIPLATIN [Suspect]
     Indication: COLON CANCER
     Dosage: last dose prior to SAE was on 07/May/2012
     Route: 042
     Dates: start: 20120507

REACTIONS (2)
  - Diarrhoea [Recovered/Resolved]
  - Renal failure acute [Recovered/Resolved]
